FAERS Safety Report 12896414 (Version 1)
Quarter: 2016Q4

REPORT INFORMATION
  Report Type: Spontaneous
  Country: US (occurrence: US)
  Receive Date: 20161028
  Receipt Date: 20161028
  Transmission Date: 20170207
  Serious: Yes (Disabling, Other)
  Sender: FDA-Public Use
  Company Number: None

PATIENT
  Age: 25 Year
  Sex: Female
  Weight: 74.84 kg

DRUGS (5)
  1. VYVANSE [Concomitant]
     Active Substance: LISDEXAMFETAMINE DIMESYLATE
  2. IBUPROFEN. [Concomitant]
     Active Substance: IBUPROFEN
  3. MIRENA [Suspect]
     Active Substance: LEVONORGESTREL
  4. ALLEGRA [Concomitant]
     Active Substance: FEXOFENADINE HYDROCHLORIDE
  5. XANAX [Concomitant]
     Active Substance: ALPRAZOLAM

REACTIONS (26)
  - Weight increased [None]
  - Breast pain [None]
  - Balance disorder [None]
  - Muscle spasms [None]
  - Vaginal haemorrhage [None]
  - Palpitations [None]
  - Skin fissures [None]
  - Arthralgia [None]
  - Arthropathy [None]
  - Dizziness [None]
  - Cold sweat [None]
  - Pruritus generalised [None]
  - Scar [None]
  - Acne [None]
  - Anxiety [None]
  - Mood swings [None]
  - Vaginal discharge [None]
  - Dysstasia [None]
  - Post procedural haemorrhage [None]
  - Breast discomfort [None]
  - Loss of libido [None]
  - Unevaluable event [None]
  - Condition aggravated [None]
  - Tinnitus [None]
  - Tunnel vision [None]
  - Activities of daily living impaired [None]

NARRATIVE: CASE EVENT DATE: 20161027
